FAERS Safety Report 10175406 (Version 1)
Quarter: 2014Q2

REPORT INFORMATION
  Report Type: Spontaneous
  Country: IN (occurrence: IN)
  Receive Date: 20140515
  Receipt Date: 20140515
  Transmission Date: 20141212
  Serious: Yes (Other)
  Sender: FDA-Public Use
  Company Number: IN-BAXTER-2014BAX023731

PATIENT
  Age: 56 Year
  Sex: Female

DRUGS (12)
  1. ISOFLURANE USP (AERRANE) 100ML, 250ML GLASS BOTTLES - INHALATION ANAES [Suspect]
     Indication: MAINTENANCE OF ANAESTHESIA
     Dosage: 1-2%
     Route: 055
  2. FENTANYL [Suspect]
     Indication: MAINTENANCE OF ANAESTHESIA
     Route: 065
  3. ATRACURIUM [Suspect]
     Indication: MAINTENANCE OF ANAESTHESIA
     Route: 065
  4. SODIUM BICARBONATE [Suspect]
     Indication: RESUSCITATION
     Route: 065
  5. TRAMADOL [Suspect]
     Indication: PROCEDURAL PAIN
     Route: 042
  6. ATROPINE SULFATE [Suspect]
     Indication: RESUSCITATION
     Route: 042
  7. DOPAMINE HYDROCHLORIDE [Suspect]
     Indication: RESUSCITATION
     Route: 042
  8. DOPAMINE HYDROCHLORIDE [Suspect]
     Route: 042
  9. NORADRENALINE [Suspect]
     Indication: RESUSCITATION
     Route: 065
  10. NORADRENALINE [Suspect]
     Route: 065
  11. SODIUM BICARBONATE [Suspect]
     Indication: RESUSCITATION
     Route: 042
  12. MEROPENEM [Concomitant]
     Indication: PRODUCT USED FOR UNKNOWN INDICATION
     Route: 065

REACTIONS (2)
  - Rales [Unknown]
  - Stress cardiomyopathy [Recovered/Resolved]
